FAERS Safety Report 4436533-1 (Version None)
Quarter: 2004Q3

REPORT INFORMATION
  Report Type: 
  Country: None (occurrence: None)
  Receive Date: 20040830
  Receipt Date: 20040615
  Transmission Date: 20050211
  Serious: Yes (Hospitalization)
  Sender: FDA-Public Use
  Company Number: US-BRISTOL-MYERS SQUIBB COMPANY-12614525

PATIENT
  Age: 53 Year
  Sex: Male
  Weight: 96 kg

DRUGS (17)
  1. ABILIFY [Suspect]
     Indication: BIPOLAR DISORDER
     Dosage: 10 MG ON 28-APR-04; DOSE INCREASED TO 20 MG EVERY DAY ON 06-MAY-04
     Route: 048
     Dates: start: 20040428, end: 20040508
  2. ABILIFY [Suspect]
     Indication: PERSONALITY DISORDER
     Dosage: 10 MG ON 28-APR-04; DOSE INCREASED TO 20 MG EVERY DAY ON 06-MAY-04
     Route: 048
     Dates: start: 20040428, end: 20040508
  3. ABILIFY [Suspect]
     Indication: OBSESSIVE-COMPULSIVE DISORDER
     Dosage: 10 MG ON 28-APR-04; DOSE INCREASED TO 20 MG EVERY DAY ON 06-MAY-04
     Route: 048
     Dates: start: 20040428, end: 20040508
  4. LORAZEPAM [Concomitant]
  5. ZIPRASIDONE [Concomitant]
  6. CLONAZEPAM [Concomitant]
  7. GABAPENTIN [Concomitant]
     Dosage: 600 MG TWO TABS BID
  8. PAXIL [Concomitant]
  9. TERAZOSIN HCL [Concomitant]
     Indication: URINARY TRACT DISORDER
     Dosage: 1 CAP HS
  10. TERAZOSIN HCL [Concomitant]
     Indication: PROSTATIC DISORDER
     Dosage: 1 CAP HS
  11. LITHIUM CARBONATE [Concomitant]
     Indication: BIPOLAR DISORDER
     Dosage: HS
  12. PROPRANOLOL HCL [Concomitant]
  13. QUETIAPINE FUMARATE [Concomitant]
     Indication: PSYCHOTIC DISORDER
     Dosage: TAPERING OFF AT TIME OF RPT-1.5 TAB HS X 7 DAYS, THEN 1 HS X7 DAYS, THEN .5 HS X7 DAYS, THEN STOP
     Route: 048
  14. SYNTHROID [Concomitant]
  15. METFORMIN HCL [Concomitant]
  16. ALPHA-TOCOPHEROL [Concomitant]
  17. PAROXETINE HCL [Concomitant]
     Dosage: .5 TAB BEDTIME FOR 7 DAYS, THEN ONE TAB AT BEDTIME

REACTIONS (3)
  - ABNORMAL BEHAVIOUR [None]
  - BLOOD GLUCOSE INCREASED [None]
  - PSYCHOMOTOR HYPERACTIVITY [None]
